FAERS Safety Report 14904557 (Version 1)
Quarter: 2018Q2

REPORT INFORMATION
  Report Type: Spontaneous
  Country: US (occurrence: US)
  Receive Date: 20180517
  Receipt Date: 20180517
  Transmission Date: 20180711
  Serious: No
  Sender: FDA-Public Use
  Company Number: US-SA-2017SA165887

PATIENT

DRUGS (5)
  1. FLEXTOUCH/INSULIN DETEMIR [Concomitant]
     Route: 065
  2. TOUJEO [Concomitant]
     Active Substance: INSULIN GLARGINE
     Route: 065
  3. TRESIBA [Concomitant]
     Active Substance: INSULIN DEGLUDEC
     Route: 065
  4. LANTUS [Suspect]
     Active Substance: INSULIN GLARGINE
     Route: 051
  5. SOLOSTAR [Concomitant]
     Active Substance: DEVICE
     Route: 065

REACTIONS (1)
  - Hyperhidrosis [Unknown]
